FAERS Safety Report 8549138-8 (Version None)
Quarter: 2012Q3

REPORT INFORMATION
  Report Type: 
  Country: None (occurrence: None)
  Receive Date: 20120730
  Receipt Date: 20120725
  Transmission Date: 20120928
  Serious: Yes (Disabling)
  Sender: FDA-Public Use
  Company Number: US-PFIZER INC-2012180409

PATIENT
  Sex: Female
  Weight: 82 kg

DRUGS (1)
  1. LIPITOR [Suspect]
     Indication: BLOOD CHOLESTEROL INCREASED
     Dosage: 40 MG, 1X/DAY
     Route: 048

REACTIONS (4)
  - POLYARTHRITIS [None]
  - POOR PERIPHERAL CIRCULATION [None]
  - INTERVERTEBRAL DISC PROTRUSION [None]
  - TENDON NECROSIS [None]
